FAERS Safety Report 9788907 (Version 1)
Quarter: 2013Q4

REPORT INFORMATION
  Report Type: Spontaneous
  Country: IT (occurrence: IT)
  Receive Date: 20131230
  Receipt Date: 20131230
  Transmission Date: 20140711
  Serious: Yes (Other)
  Sender: FDA-Public Use
  Company Number: IT-GLAXOSMITHKLINE-B0955607A

PATIENT
  Age: 24 Year
  Sex: Male

DRUGS (2)
  1. SEROXAT [Suspect]
     Indication: DEPRESSION
     Dosage: 10MG PER DAY
     Route: 048
     Dates: start: 20130824, end: 20130828
  2. ALPRAZOLAM [Suspect]
     Indication: PANIC ATTACK
     Dosage: 15DROP PER DAY
     Route: 048
     Dates: start: 20130808, end: 20130828

REACTIONS (4)
  - Heat stroke [Recovering/Resolving]
  - Myalgia [Recovering/Resolving]
  - Tremor [Recovering/Resolving]
  - Diarrhoea [Recovering/Resolving]
